FAERS Safety Report 7584442-1 (Version None)
Quarter: 2011Q2

REPORT INFORMATION
  Report Type: 
  Country: None (occurrence: None)
  Receive Date: 20110630
  Receipt Date: 20110621
  Transmission Date: 20111010
  Serious: Yes (Hospitalization, Other)
  Sender: FDA-Public Use
  Company Number: US-ASTRAZENECA-2011SE30678

PATIENT
  Age: 86 Year
  Sex: Male

DRUGS (9)
  1. ALPHA LIPOIC ACID [Concomitant]
     Route: 048
  2. ZOLOFT [Concomitant]
     Route: 048
  3. TAURIN [Concomitant]
     Route: 048
  4. PREDNISONE [Concomitant]
     Route: 048
  5. LOVAZA [Concomitant]
     Route: 048
  6. ACCUPRIL [Concomitant]
     Route: 048
  7. RED YEAST RICE [Concomitant]
     Route: 048
  8. TOPROL-XL [Suspect]
     Route: 048
  9. MULTI-VITAMIN [Concomitant]
     Route: 048

REACTIONS (6)
  - INVESTIGATION [None]
  - COLONOSCOPY [None]
  - PULMONARY FIBROSIS [None]
  - BLOOD PRESSURE FLUCTUATION [None]
  - HEART RATE IRREGULAR [None]
  - DRUG PRESCRIBING ERROR [None]
